FAERS Safety Report 6090176-5 (Version None)
Quarter: 2009Q1

REPORT INFORMATION
  Report Type: 
  Country: None (occurrence: None)
  Receive Date: 20090220
  Receipt Date: 20090209
  Transmission Date: 20090719
  Serious: Yes (Other)
  Sender: FDA-Public Use
  Company Number: GXBR2009US00640

PATIENT
  Age: 32 Year
  Sex: Female

DRUGS (1)
  1. LORATADINE [Suspect]
     Indication: HYPERSENSITIVITY
     Dates: start: 20070101

REACTIONS (2)
  - CAESAREAN SECTION [None]
  - DRUG EXPOSURE DURING PREGNANCY [None]
